FAERS Safety Report 10230384 (Version 1)
Quarter: 2014Q2

REPORT INFORMATION
  Report Type: Report from Study
  Country: US (occurrence: US)
  Receive Date: 20140611
  Receipt Date: 20140611
  Transmission Date: 20141212
  Serious: Yes (Other)
  Sender: FDA-Public Use
  Company Number: US-SA-2014SA072547

PATIENT
  Age: 55 Year
  Sex: Male

DRUGS (3)
  1. LANTUS [Suspect]
     Indication: PRODUCT USED FOR UNKNOWN INDICATION
     Dosage: DOSE:50 UNIT(S)
     Route: 065
  2. ALL OTHER THERAPEUTIC PRODUCTS [Concomitant]
  3. METFORMIN [Concomitant]

REACTIONS (6)
  - Ischaemia [Unknown]
  - Blood glucose increased [Not Recovered/Not Resolved]
  - Somnolence [Not Recovered/Not Resolved]
  - Asthenia [Not Recovered/Not Resolved]
  - Drug administration error [Unknown]
  - Malaise [Not Recovered/Not Resolved]
